FAERS Safety Report 15853681 (Version 11)
Quarter: 2022Q4

REPORT INFORMATION
  Report Type: Spontaneous
  Country: US (occurrence: US)
  Receive Date: 20190122
  Receipt Date: 20221212
  Transmission Date: 20230113
  Serious: No
  Sender: FDA-Public Use
  Company Number: US-PFIZER INC-2019027662

PATIENT
  Age: 57 Year
  Sex: Male
  Weight: 79.365 kg

DRUGS (4)
  1. PHENELZINE SULFATE [Suspect]
     Active Substance: PHENELZINE SULFATE
     Indication: Depressive symptom
     Dosage: 60 MG, DAILY (15 MG, 4 DAILY)
     Route: 048
     Dates: start: 20200724
  2. NARDIL [Concomitant]
     Active Substance: PHENELZINE SULFATE
     Indication: Anxiety
     Dosage: 60 MG, DAILY (TAKE TWO IN THE AM AND THEN ONE EVERY FOUR HOURS FOR TOTAL OF 4 DAILY BY MOUTH))
     Route: 048
  3. NARDIL [Concomitant]
     Active Substance: PHENELZINE SULFATE
     Indication: Obsessive-compulsive symptom
  4. ALPRAZOLAM [Concomitant]
     Active Substance: ALPRAZOLAM
     Dosage: 1MG;  5 TIMES DAILY
     Route: 048

REACTIONS (2)
  - Drug ineffective [Unknown]
  - Confusional state [Not Recovered/Not Resolved]
